FAERS Safety Report 24783383 (Version 1)
Quarter: 2024Q4

REPORT INFORMATION
  Report Type: Spontaneous
  Country: US (occurrence: None)
  Receive Date: 20241227
  Receipt Date: 20241227
  Transmission Date: 20250115
  Serious: Yes (Disabling)
  Sender: Public
  Company Number: None

PATIENT
  Age: 6 Year
  Sex: Female
  Weight: 22.05 kg

DRUGS (1)
  1. MIRALAX [Suspect]
     Active Substance: POLYETHYLENE GLYCOL 3350
     Indication: Constipation
     Dates: start: 20220901, end: 20241223

REACTIONS (3)
  - Tic [None]
  - Mood swings [None]
  - Seizure [None]

NARRATIVE: CASE EVENT DATE: 20241125
